FAERS Safety Report 13076178 (Version 1)
Quarter: 2016Q4

REPORT INFORMATION
  Report Type: Spontaneous
  Country: US (occurrence: US)
  Receive Date: 20161230
  Receipt Date: 20161230
  Transmission Date: 20170207
  Serious: No
  Sender: FDA-Public Use
  Company Number: None

PATIENT
  Age: 53 Year
  Sex: Male

DRUGS (2)
  1. RIBAVIRIN TAB 200MG [Suspect]
     Active Substance: RIBAVIRIN
  2. HARVONI [Concomitant]
     Active Substance: LEDIPASVIR\SOFOSBUVIR

REACTIONS (2)
  - Frequent bowel movements [None]
  - Muscle spasms [None]

NARRATIVE: CASE EVENT DATE: 20161229
